FAERS Safety Report 13541547 (Version 1)
Quarter: 2017Q2

REPORT INFORMATION
  Report Type: Spontaneous
  Country: TR (occurrence: TR)
  Receive Date: 20170512
  Receipt Date: 20170512
  Transmission Date: 20170830
  Serious: Yes (Hospitalization)
  Sender: FDA-Public Use
  Company Number: TR-LANNETT COMPANY, INC.-TR-2017LAN000752

PATIENT
  Age: 28 Year
  Sex: Male

DRUGS (1)
  1. ISONIAZID. [Suspect]
     Active Substance: ISONIAZID
     Indication: ANTIBIOTIC PROPHYLAXIS
     Dosage: 300 MG, QD
     Route: 065

REACTIONS (1)
  - Acute psychosis [Recovered/Resolved]
